FAERS Safety Report 5246230-0 (Version None)
Quarter: 2007Q1

REPORT INFORMATION
  Report Type: 
  Country: None (occurrence: None)
  Receive Date: 20070221
  Receipt Date: 20070205
  Transmission Date: 20070707
  Serious: Yes (Other)
  Sender: FDA-Public Use
  Company Number: PHBS2007JP01653

PATIENT
  Age: 75 Year
  Sex: Male

DRUGS (1)
  1. VISUDYNE [Suspect]
     Indication: POLYPOIDAL CHOROIDAL VASCULOPATHY
     Dates: start: 20060525, end: 20060525

REACTIONS (4)
  - CATARACT [None]
  - RETINAL DETACHMENT [None]
  - RETINAL TEAR [None]
  - VISUAL FIELD DEFECT [None]
